FAERS Safety Report 8404123 (Version 2)
Quarter: 2013Q2

REPORT INFORMATION
  Report Type: Spontaneous
  Country: US (occurrence: None)
  Receive Date: 20111227
  Receipt Date: 20120426
  Transmission Date: 20140414
  Serious: Yes (Other)
  Sender: FDA-Public Use
  Company Number: PHEH2011US009677

PATIENT
  Sex: Female

DRUGS (4)
  1. GILENYA [Suspect]
     Dosage: 0.5 MG, QD, ORAL
     Route: 048
  2. BACLOFEN (BACLOFEN) [Concomitant]
  3. NEURTRONIN (NEUROTRONIN) [Concomitant]
  4. VESICARE (SOLIFENACIN) [Suspect]

REACTIONS (2)
  - MACULAR OEDEMA [None]
  - Vision blurred [None]
